FAERS Safety Report 17101498 (Version 1)
Quarter: 2019Q4

REPORT INFORMATION
  Report Type: Spontaneous
  Country: US (occurrence: US)
  Receive Date: 20191202
  Receipt Date: 20191202
  Transmission Date: 20200122
  Serious: No
  Sender: FDA-Public Use
  Company Number: US-ANTARES PHARMA, INC.-2019-SPO-XY-0022

PATIENT
  Sex: Male

DRUGS (1)
  1. OTREXUP [Suspect]
     Active Substance: METHOTREXATE
     Indication: CROHN^S DISEASE
     Dosage: 25 MG, QWK
     Route: 058
     Dates: start: 20190510

REACTIONS (4)
  - Abdominal distension [Unknown]
  - Discomfort [Unknown]
  - Product use in unapproved indication [Unknown]
  - Pain [Unknown]
